FAERS Safety Report 7797911-6 (Version None)
Quarter: 2011Q4

REPORT INFORMATION
  Report Type: 
  Country: None (occurrence: None)
  Receive Date: 20111005
  Receipt Date: 20110923
  Transmission Date: 20120403
  Serious: Yes (Hospitalization)
  Sender: FDA-Public Use
  Company Number: US-BAYER-2011-050957

PATIENT
  Age: 40 Year
  Sex: Female
  Weight: 105.67 kg

DRUGS (8)
  1. DULCOLAX [Concomitant]
     Indication: CONSTIPATION
     Dosage: UNK
     Dates: start: 20101126
  2. POLYETHYLENE GLYCOL [Concomitant]
     Indication: CONSTIPATION
     Dosage: UNK
     Dates: start: 20101126
  3. YAZ [Suspect]
     Dosage: UNK
     Dates: start: 20101001, end: 20101125
  4. DIGOXIN [Concomitant]
     Indication: HEART RATE INCREASED
     Dosage: UNK
     Dates: start: 20101126
  5. WARFARIN SODIUM [Concomitant]
     Indication: THROMBOSIS
     Dosage: UNK
     Dates: start: 20101126
  6. FUROSEMIDE [Concomitant]
     Dosage: UNK
     Dates: start: 20101126
  7. TEMAZEPAM [Concomitant]
     Indication: INSOMNIA
     Dosage: UNK
     Dates: start: 20101126
  8. NAPROXEN SODIUM AND PSEUDOEPHEDRINE HYDROCHLORIDE [Concomitant]
     Indication: PAIN
     Dosage: UNK
     Dates: start: 20101126

REACTIONS (1)
  - PULMONARY EMBOLISM [None]
